FAERS Safety Report 9839340 (Version 2)
Quarter: 2014Q1

REPORT INFORMATION
  Report Type: Spontaneous
  Country: FR (occurrence: FR)
  Receive Date: 20140123
  Receipt Date: 20140123
  Transmission Date: 20141002
  Serious: Yes (Death)
  Sender: FDA-Public Use
  Company Number: PHHY2013FR148329

PATIENT
  Age: 69 Year
  Sex: Female

DRUGS (7)
  1. AFINITOR [Suspect]
     Indication: BREAST CANCER
     Dosage: 10 MG, QD
     Route: 048
     Dates: start: 20131126
  2. AROMASIN [Concomitant]
     Dosage: UNK
     Dates: start: 201309
  3. DIAMICRON [Concomitant]
  4. CANDESARTAN W/HYDROCHLOROTHIAZIDE [Concomitant]
  5. PRAVASTATIN [Concomitant]
  6. MEDIATENSYL [Concomitant]
     Dosage: UNK
  7. STAGID [Concomitant]

REACTIONS (3)
  - Blood urea abnormal [Fatal]
  - Somnolence [Not Recovered/Not Resolved]
  - Diarrhoea [Not Recovered/Not Resolved]
